FAERS Safety Report 15698966 (Version 6)
Quarter: 2021Q3

REPORT INFORMATION
  Report Type: Spontaneous
  Country: US (occurrence: US)
  Receive Date: 20181207
  Receipt Date: 20210729
  Transmission Date: 20211014
  Serious: No
  Sender: FDA-Public Use
  Company Number: US-PFIZER INC-2018500556

PATIENT
  Age: 81 Year
  Sex: Female
  Weight: 68 kg

DRUGS (4)
  1. LETROZOLE. [Concomitant]
     Active Substance: LETROZOLE
     Dosage: UNK
  2. LEVOTHYROXINE SODIUM. [Concomitant]
     Active Substance: LEVOTHYROXINE SODIUM
     Dosage: 100 MG, UNK
  3. IBRANCE [Suspect]
     Active Substance: PALBOCICLIB
     Indication: BREAST CANCER FEMALE
     Dosage: 125 MG, CYCLIC (ONCE A DAY FOR 21 DAYS AND THEN OFF 7 DAYS)
     Route: 048
  4. SERTRALINE HCL [Concomitant]
     Active Substance: SERTRALINE HYDROCHLORIDE
     Dosage: UNK

REACTIONS (4)
  - Speech disorder [Unknown]
  - Mental disorder [Unknown]
  - Neoplasm progression [Unknown]
  - Memory impairment [Unknown]
